FAERS Safety Report 8987148 (Version 1)
Quarter: 2012Q4

REPORT INFORMATION
  Report Type: 
  Country: US (occurrence: US)
  Receive Date: 20121226
  Receipt Date: 20121226
  Transmission Date: 20130627
  Serious: Yes (Death, Hospitalization)
  Sender: FDA-Public Use
  Company Number: US-WATSON-2012-22324

PATIENT
  Age: 75 Year
  Sex: Female
  Weight: 57 kg

DRUGS (2)
  1. BACLOFEN [Suspect]
     Indication: MUSCLE SPASMS
     Dosage: 1 tab every 8 hours
     Route: 048
     Dates: start: 20120825
  2. OXYCODONE [Suspect]
     Indication: MUSCLE SPASMS
     Dosage: 1 tab q 4-6 hours PRN
     Route: 048
     Dates: start: 201109

REACTIONS (2)
  - Death [Fatal]
  - Loss of consciousness [Recovered/Resolved]
